FAERS Safety Report 11703362 (Version 1)
Quarter: 2015Q4

REPORT INFORMATION
  Report Type: Spontaneous
  Country: US (occurrence: US)
  Receive Date: 20151105
  Receipt Date: 20151105
  Transmission Date: 20160304
  Serious: Yes (Other)
  Sender: FDA-Public Use
  Company Number: US-DSJP-DSU-2015-121629

PATIENT

DRUGS (1)
  1. BENICAR HCT [Suspect]
     Active Substance: HYDROCHLOROTHIAZIDE\OLMESARTAN MEDOXOMIL
     Indication: HYPERTENSION
     Dosage: 40/12.5 MG ONCE DAILY
     Dates: start: 20060128, end: 20141219

REACTIONS (11)
  - Gastrooesophageal reflux disease [Unknown]
  - Early satiety [Unknown]
  - Coeliac disease [Unknown]
  - Vomiting [Unknown]
  - Abdominal pain [Unknown]
  - Abdominal distension [Unknown]
  - Nausea [Unknown]
  - Decreased appetite [Unknown]
  - Prostate cancer [Unknown]
  - Diarrhoea [Unknown]
  - Weight decreased [Unknown]
